FAERS Safety Report 23907772 (Version 1)
Quarter: 2024Q2

REPORT INFORMATION
  Report Type: Spontaneous
  Country: US (occurrence: None)
  Receive Date: 20240524
  Receipt Date: 20240524
  Transmission Date: 20240716
  Serious: Yes (Hospitalization)
  Sender: FDA-Public Use
  Company Number: None

PATIENT
  Age: 74 Year
  Sex: Female

DRUGS (2)
  1. ENVARSUS XR [Suspect]
     Active Substance: TACROLIMUS
     Indication: Renal transplant
     Dosage: 1.5 MG DAILY ORAL?
     Route: 048
     Dates: start: 201703
  2. MYFORTIC [Suspect]
     Active Substance: MYCOPHENOLATE SODIUM
     Indication: Renal transplant
     Dosage: 540 MG BID ORAL
     Route: 048
     Dates: start: 201703

REACTIONS (2)
  - Urinary tract infection [None]
  - Diabetic ketoacidosis [None]

NARRATIVE: CASE EVENT DATE: 20240501
